FAERS Safety Report 12285277 (Version 1)
Quarter: 2016Q2

REPORT INFORMATION
  Report Type: Report from Study
  Country: AE (occurrence: AE)
  Receive Date: 20160420
  Receipt Date: 20160420
  Transmission Date: 20160815
  Serious: Yes (Other)
  Sender: FDA-Public Use
  Company Number: PHHY2014AE052058

PATIENT
  Age: 49 Year
  Sex: Male

DRUGS (2)
  1. EXFORGE HCT [Suspect]
     Active Substance: AMLODIPINE BESYLATE\HYDROCHLOROTHIAZIDE\VALSARTAN
     Indication: HYPERTENSION
  2. EXFORGE HCT [Suspect]
     Active Substance: AMLODIPINE BESYLATE\HYDROCHLOROTHIAZIDE\VALSARTAN
     Indication: ESSENTIAL HYPERTENSION
     Dosage: 1 DF, (VALSARTAN 160 MG, AMLODIPINE 10 MG, HYDROCHLOROTHIAZIDE 25 MG)
     Route: 048
     Dates: start: 20131019

REACTIONS (8)
  - Blood urea increased [Recovering/Resolving]
  - Blood uric acid increased [Unknown]
  - Blood creatinine increased [Unknown]
  - Cough [Recovered/Resolved]
  - Oedema [Recovering/Resolving]
  - Glycosylated haemoglobin increased [Unknown]
  - Pain [Recovered/Resolved]
  - Productive cough [Recovered/Resolved]

NARRATIVE: CASE EVENT DATE: 20131109
